FAERS Safety Report 4643876-5 (Version None)
Quarter: 2005Q2

REPORT INFORMATION
  Report Type: 
  Country: None (occurrence: None)
  Receive Date: 20050425
  Receipt Date: 20050412
  Transmission Date: 20051028
  Serious: Yes (Death)
  Sender: FDA-Public Use
  Company Number: US-GLAXOSMITHKLINE-A0553692A

PATIENT
  Age: 58 Year
  Sex: Male

DRUGS (1)
  1. NICORETTE OTC GUM, ORIGINAL [Suspect]
     Indication: SMOKING CESSATION THERAPY
     Route: 002
     Dates: end: 20040601

REACTIONS (1)
  - MYOCARDIAL INFARCTION [None]
